FAERS Safety Report 23828537 (Version 1)
Quarter: 2024Q2

REPORT INFORMATION
  Report Type: Spontaneous
  Country: CN (occurrence: None)
  Receive Date: 20240508
  Receipt Date: 20240508
  Transmission Date: 20240716
  Serious: Yes (Life-Threatening)
  Sender: FDA-Public Use
  Company Number: CN-ROCHE-3558538

PATIENT
  Age: 44 Year
  Sex: Female

DRUGS (3)
  1. AVASTIN [Suspect]
     Active Substance: BEVACIZUMAB
     Indication: Neoplasm malignant
     Route: 041
     Dates: start: 20240420
  2. CARBOPLATIN [Suspect]
     Active Substance: CARBOPLATIN
     Indication: Neoplasm malignant
     Route: 041
     Dates: start: 20240419
  3. PACLITAXEL [Suspect]
     Active Substance: PACLITAXEL
     Indication: Neoplasm malignant
     Route: 041
     Dates: start: 20240419

REACTIONS (1)
  - Myelosuppression [Unknown]

NARRATIVE: CASE EVENT DATE: 20240422
